FAERS Safety Report 5000750-2 (Version None)
Quarter: 2006Q2

REPORT INFORMATION
  Report Type: 
  Country: None (occurrence: None)
  Receive Date: 20060512
  Receipt Date: 20051107
  Transmission Date: 20061013
  Serious: Yes (Hospitalization)
  Sender: FDA-Public Use
  Company Number: US-MERCK-0511USA01118

PATIENT
  Age: 54 Year
  Sex: Male

DRUGS (6)
  1. VIOXX [Suspect]
     Indication: PAIN
     Route: 048
     Dates: start: 20000201, end: 20030101
  2. ATENOLOL [Concomitant]
     Route: 065
  3. ASPIRIN [Concomitant]
     Route: 065
  4. DARVOCET-N 100 [Concomitant]
     Route: 065
  5. FLEXERIL [Concomitant]
     Route: 065
  6. CELEBREX [Concomitant]
     Route: 065

REACTIONS (2)
  - ANXIETY [None]
  - MYOCARDIAL INFARCTION [None]
